FAERS Safety Report 8579098-5 (Version None)
Quarter: 2012Q3

REPORT INFORMATION
  Report Type: 
  Country: None (occurrence: None)
  Receive Date: 20120808
  Receipt Date: 20120801
  Transmission Date: 20120928
  Serious: Yes (Hospitalization, Other)
  Sender: FDA-Public Use
  Company Number: BR-PFIZER INC-2012188007

PATIENT
  Age: 81 Year
  Sex: Female

DRUGS (5)
  1. LYRICA [Suspect]
     Indication: SPINAL PAIN
     Dosage: UNK
  2. CELEBREX [Concomitant]
     Dosage: UNK
  3. LOSARTAN [Concomitant]
     Indication: HYPERTENSION
     Dosage: UNK
  4. SPIRONOLACTONE [Concomitant]
     Dosage: UNK
  5. AMIODARONE HYDROCHLORIDE [Concomitant]
     Dosage: UNK

REACTIONS (6)
  - INTERVERTEBRAL DISC PROTRUSION [None]
  - INFLAMMATION [None]
  - DRUG INEFFECTIVE [None]
  - CARDIAC VALVE DISEASE [None]
  - CATARACT [None]
  - VISUAL IMPAIRMENT [None]
